FAERS Safety Report 19209567 (Version 4)
Quarter: 2021Q2

REPORT INFORMATION
  Report Type: Spontaneous
  Country: US (occurrence: US)
  Receive Date: 20210504
  Receipt Date: 20210613
  Transmission Date: 20210717
  Serious: No
  Sender: FDA-Public Use
  Company Number: US-AMGEN-USASP2021066057

PATIENT
  Age: 46 Year
  Sex: Female

DRUGS (12)
  1. FLUTICASONE. [Concomitant]
     Active Substance: FLUTICASONE
  2. SUMATRIPTAN. [Concomitant]
     Active Substance: SUMATRIPTAN
  3. TOPIRAMATE. [Concomitant]
     Active Substance: TOPIRAMATE
  4. BUSPIRONE [Concomitant]
     Active Substance: BUSPIRONE HYDROCHLORIDE
  5. ALAHIST CF [Concomitant]
     Active Substance: DEXBROMPHENIRAMINE MALEATE\DEXTROMETHORPHAN HYDROBROMIDE\PHENYLEPHRINE HYDROCHLORIDE
  6. TRAZODONE [Concomitant]
     Active Substance: TRAZODONE HYDROCHLORIDE
  7. SERTRALINE [Concomitant]
     Active Substance: SERTRALINE HYDROCHLORIDE
  8. FERROUS SULFATE. [Concomitant]
     Active Substance: FERROUS SULFATE
  9. DEXAMETHASONE. [Concomitant]
     Active Substance: DEXAMETHASONE
  10. OTEZLA [Suspect]
     Active Substance: APREMILAST
     Indication: PSORIASIS
     Dosage: 30 MILLIGRAM, BID
     Route: 048
     Dates: start: 20210127
  11. TACROLIMUS. [Concomitant]
     Active Substance: TACROLIMUS
  12. DULOXETINE. [Concomitant]
     Active Substance: DULOXETINE
     Dosage: UNK

REACTIONS (7)
  - Nausea [Not Recovered/Not Resolved]
  - Loss of personal independence in daily activities [Not Recovered/Not Resolved]
  - Upper respiratory tract congestion [Not Recovered/Not Resolved]
  - Psoriasis [Not Recovered/Not Resolved]
  - Pain [Not Recovered/Not Resolved]
  - Therapy non-responder [Not Recovered/Not Resolved]
  - Headache [Not Recovered/Not Resolved]

NARRATIVE: CASE EVENT DATE: 20210426
